FAERS Safety Report 8918823 (Version 1)
Quarter: 2012Q4

REPORT INFORMATION
  Report Type: Spontaneous
  Country: US (occurrence: None)
  Receive Date: 20121115
  Receipt Date: 20121115
  Transmission Date: 20130627
  Serious: Yes (Life-Threatening, Hospitalization, Disabling)
  Sender: FDA-Public Use
  Company Number: None

PATIENT
  Age: 23 Year
  Sex: Male
  Weight: 81.65 kg

DRUGS (1)
  1. PROPECIA 1 MG MERCK [Suspect]
     Route: 048

REACTIONS (3)
  - Erectile dysfunction [None]
  - Erectile dysfunction [None]
  - Libido decreased [None]
